FAERS Safety Report 12253810 (Version 3)
Quarter: 2016Q2

REPORT INFORMATION
  Report Type: Spontaneous
  Country: CH (occurrence: CH)
  Receive Date: 20160411
  Receipt Date: 20160614
  Transmission Date: 20160815
  Serious: Yes (Hospitalization, Other)
  Sender: FDA-Public Use
  Company Number: CH-INDIVIOR LIMITED-INDV-089586-2016

PATIENT
  Age: 39 Year
  Sex: Male

DRUGS (12)
  1. METHADONE [Suspect]
     Active Substance: METHADONE HYDROCHLORIDE
     Indication: DRUG DEPENDENCE
     Dosage: 200 MG, UNK
     Route: 065
  2. ATACAND [Concomitant]
     Active Substance: CANDESARTAN CILEXETIL
     Indication: PRODUCT USED FOR UNKNOWN INDICATION
     Dosage: 16 MG, TWO TABLETS IN THE MORNING
     Route: 065
  3. LYRICA [Concomitant]
     Active Substance: PREGABALIN
     Indication: ANALGESIC THERAPY
     Dosage: 75 MG, ONE CAPSULE IN THE EVENING
     Route: 065
  4. METHADONE [Suspect]
     Active Substance: METHADONE HYDROCHLORIDE
     Dosage: 10 MG/1 ML, 30 MG IN THE MORNING AND 50 MG AT NIGHT
     Route: 065
  5. METOPROLOL. [Concomitant]
     Active Substance: METOPROLOL
     Indication: PRODUCT USED FOR UNKNOWN INDICATION
     Dosage: 100 MG, TWO TABLETS IN THE MORNING
     Route: 065
  6. SUBUTEX [Suspect]
     Active Substance: BUPRENORPHINE HYDROCHLORIDE
     Indication: PAIN
     Dosage: TWO 8 MG TABLETS, ONCE DAILY, IN THE MORNING
     Route: 065
  7. LYRICA [Concomitant]
     Active Substance: PREGABALIN
     Dosage: 150 MG, ONE CAPSULE IN THE MORNING
     Route: 065
  8. PRAZINE [Concomitant]
     Active Substance: PROMAZINE HYDROCHLORIDE
     Dosage: AS NEEDEDTO A HIGH DOSE OF 400 MG
     Route: 065
  9. SUBUTEX [Suspect]
     Active Substance: BUPRENORPHINE HYDROCHLORIDE
     Indication: DRUG DEPENDENCE
     Dosage: DOSES TITRATED UPTO 16 MG, DAILY
     Route: 065
     Dates: start: 201211
  10. SUBUTEX [Suspect]
     Active Substance: BUPRENORPHINE HYDROCHLORIDE
     Dosage: 8 MG, FOUR TIMES DAILY
     Route: 065
     Dates: start: 2012, end: 2015
  11. PRAZINE [Concomitant]
     Active Substance: PROMAZINE HYDROCHLORIDE
     Indication: PRODUCT USED FOR UNKNOWN INDICATION
     Dosage: 100 MG, TWO TABLETS AT NIGHT
     Route: 065
  12. SUBUTEX [Suspect]
     Active Substance: BUPRENORPHINE HYDROCHLORIDE
     Dosage: AS NEEDED, HD 20 MG (4 MG AT A TIME)
     Route: 065

REACTIONS (14)
  - Aortic dissection [Recovering/Resolving]
  - Lipomatosis [Recovering/Resolving]
  - Paraparesis [Recovering/Resolving]
  - Spinal cord ischaemia [Recovering/Resolving]
  - Pneumonia [Recovering/Resolving]
  - Aortic intramural haematoma [Recovering/Resolving]
  - Procedural pneumothorax [Recovering/Resolving]
  - Cerebral ischaemia [Recovering/Resolving]
  - Adverse event [Recovering/Resolving]
  - Hypertension [Recovering/Resolving]
  - Product use issue [Recovered/Resolved]
  - Aortic aneurysm [Recovering/Resolving]
  - Subcutaneous emphysema [Recovering/Resolving]
  - Prescribed overdose [Recovered/Resolved]

NARRATIVE: CASE EVENT DATE: 2012
